FAERS Safety Report 4382604-8 (Version None)
Quarter: 2004Q2

REPORT INFORMATION
  Report Type: 
  Country: None (occurrence: None)
  Receive Date: 20040617
  Receipt Date: 20040607
  Transmission Date: 20050107
  Serious: Yes (Hospitalization, Disabling)
  Sender: FDA-Public Use
  Company Number: 2004218425GB

PATIENT
  Age: 70 Year
  Sex: Male

DRUGS (10)
  1. LINEZOLID             (LINEZOLID) [Suspect]
     Indication: STAPHYLOCOCCAL INFECTION
     Dosage: 600 MG, BID, ORAL
     Route: 048
     Dates: start: 20040503
  2. SIMVASTATIN [Concomitant]
  3. ALLOPURINOL [Concomitant]
  4. FUROSEMIDE [Concomitant]
  5. NICORANDIL (NICORANDIL) [Concomitant]
  6. DIGOXIN [Concomitant]
  7. LISINOPRIL [Concomitant]
  8. ACETAMINOPHEN [Concomitant]
  9. TRAMADOL [Concomitant]
  10. WARFARIN SODIUM [Concomitant]

REACTIONS (2)
  - INTESTINAL HAEMORRHAGE [None]
  - THROMBOCYTOPENIA [None]
